APPROVED DRUG PRODUCT: SYFOVRE
Active Ingredient: PEGCETACOPLAN
Strength: 15MG/0.1ML (15MG/0.1ML)
Dosage Form/Route: SOLUTION;INTRAVITREAL
Application: N217171 | Product #001
Applicant: APELLIS PHARMACEUTICALS INC
Approved: Feb 17, 2023 | RLD: Yes | RS: Yes | Type: RX

PATENTS:
Patent 12528836 | Expires: Oct 7, 2036
Patent 11292815 | Expires: Nov 15, 2033
Patent 10875893 | Expires: Nov 15, 2033
Patent 9169307 | Expires: Nov 18, 2027
Patent 9056076 | Expires: Oct 25, 2026
Patent 8168584 | Expires: Apr 7, 2027
Patent 8168584 | Expires: Apr 7, 2027
Patent 11903994 | Expires: Feb 22, 2037
Patent 11903994 | Expires: Feb 22, 2037
Patent 11903994 | Expires: Feb 22, 2037
Patent 11661441 | Expires: Jan 13, 2033
Patent 10035822 | Expires: Nov 15, 2033
Patent 7989589 | Expires: Dec 4, 2027
Patent 7888323 | Expires: Dec 4, 2027
Patent 10125171 | Expires: Aug 2, 2033
Patent 12458695 | Expires: Dec 14, 2038

EXCLUSIVITY:
Code: NCE | Date: May 14, 2026
Code: NP | Date: Feb 22, 2026